FAERS Safety Report 13570383 (Version 1)
Quarter: 2017Q2

REPORT INFORMATION
  Report Type: Spontaneous
  Country: None (occurrence: US)
  Receive Date: 20170522
  Receipt Date: 20170522
  Transmission Date: 20170830
  Serious: No
  Sender: FDA-Public Use
  Company Number: US-ALLERMED LABORATORIES, INC.-2021068

PATIENT
  Age: 14 Year
  Sex: Male
  Weight: 84.55 kg

DRUGS (19)
  1. FOOD - PLANT SOURCE, WALNUT, BLACK JUGLANS NIGRA [Suspect]
     Active Substance: BLACK WALNUT
     Route: 058
     Dates: start: 20160708
  2. POLLENS - TREES, BEECH, AMERICAN FAGUS GRANDIFOLIA [Suspect]
     Active Substance: FAGUS GRANDIFOLIA POLLEN
     Route: 058
     Dates: start: 20160708
  3. POLLENS - WEEDS AND GARDEN PLANTS, MARSHELDER, TRUE/ROUGH, IVA ANNUA [Suspect]
     Active Substance: IVA ANNUA POLLEN
     Route: 058
     Dates: start: 20160708
  4. BOX ELDER POLLEN [Suspect]
     Active Substance: ACER NEGUNDO POLLEN
     Route: 058
     Dates: start: 20160708
  5. WHITE OAK [Suspect]
     Active Substance: QUERCUS ALBA POLLEN
     Route: 058
  6. ALLERGENIC EXTRACT- BLUEGRASS, KENTUCKY JUNE POA PRATENSIS [Suspect]
     Active Substance: POA PRATENSIS POLLEN
     Route: 058
     Dates: start: 20160708
  7. POLLENS - TREES, CEDAR, RED JUNIPERUS VIRGINIANA [Suspect]
     Active Substance: JUNIPERUS VIRGINIANA POLLEN
     Route: 058
     Dates: start: 20160708
  8. POLLENS - WEEDS AND GARDEN PLANTS, SORREL, SHEEP RUMEX ACETOSELLA [Suspect]
     Active Substance: RUMEX ACETOSELLA POLLEN
     Route: 058
     Dates: start: 20160708
  9. POLLENS - WEEDS AND GARDEN PLANTS, SAGEBRUSH, ARTEMISIA TRIDENTATA [Suspect]
     Active Substance: ARTEMISIA TRIDENTATA POLLEN
     Route: 058
     Dates: start: 20160708
  10. POLLENS - GRASSES, JOHNSON GRASS SORGHUM HALEPENSE [Suspect]
     Active Substance: SORGHUM HALEPENSE POLLEN
     Route: 058
     Dates: start: 20160708
  11. STANDARDIZED TIMOTHY GRASS POLLEN [Suspect]
     Active Substance: PHLEUM PRATENSE POLLEN
     Route: 058
     Dates: start: 20160708
  12. POLLENS - TREES, BIRCH, RED/RIVER, BETULA NIGRA [Suspect]
     Active Substance: BETULA NIGRA POLLEN
     Route: 058
     Dates: start: 20160708
  13. ENGLISH PLANTAIN POLLEN [Suspect]
     Active Substance: PLANTAGO LANCEOLATA POLLEN
     Indication: MULTIPLE ALLERGIES
     Route: 058
     Dates: start: 20160708
  14. STANDARDIZED CAT HAIR [Suspect]
     Active Substance: FELIS CATUS HAIR
     Route: 058
  15. POLLENS - WEEDS AND GARDEN PLANTS, COCKLEBUR XANTHIUM STRUMARIUM [Suspect]
     Active Substance: XANTHIUM STRUMARIUM POLLEN
     Route: 058
     Dates: start: 20160708
  16. MIXTURE OF STANDARDIZED MITES [Suspect]
     Active Substance: DERMATOPHAGOIDES FARINAE\DERMATOPHAGOIDES PTERONYSSINUS
     Route: 058
     Dates: start: 20160708
  17. POLLENS - TREES, ASH, WHITE FRAXINUS AMERICANA [Suspect]
     Active Substance: FRAXINUS AMERICANA POLLEN
     Route: 058
     Dates: start: 20160708
  18. POLLENS - TREES, COTTONWOOD, EASTERN, POPULUS DELTOIDES [Suspect]
     Active Substance: POPULUS DELTOIDES POLLEN
     Route: 058
     Dates: start: 20160708
  19. POLLENS - WEEDS AND GARDEN PLANTS, RAGWEED, MIXED AMBROSIA [Suspect]
     Active Substance: AMBROSIA ARTEMISIIFOLIA POLLEN\AMBROSIA TRIFIDA POLLEN
     Route: 058
     Dates: start: 20160708

REACTIONS (1)
  - Local reaction [Recovered/Resolved]

NARRATIVE: CASE EVENT DATE: 20160708
